FAERS Safety Report 8283107-0 (Version None)
Quarter: 2012Q2

REPORT INFORMATION
  Report Type: 
  Country: None (occurrence: None)
  Receive Date: 20120413
  Receipt Date: 20110621
  Transmission Date: 20120825
  Serious: Yes (Other)
  Sender: FDA-Public Use
  Company Number: US-GLAXOSMITHKLINE-A0932237A

PATIENT
  Age: 26 Year
  Sex: Female
  Weight: 104.5 kg

DRUGS (3)
  1. LAMICTAL [Suspect]
     Indication: DEPRESSION
     Dosage: 100MG PER DAY
     Route: 048
     Dates: start: 20110428
  2. LOESTRIN 1.5/30 [Suspect]
     Indication: PRODUCT USED FOR UNKNOWN INDICATION
  3. ALPRAZOLAM [Suspect]
     Indication: ANXIETY
     Dosage: .5Z PER DAY
     Dates: start: 20110615

REACTIONS (3)
  - GALLBLADDER DISORDER [None]
  - GESTATIONAL HYPERTENSION [None]
  - MATERNAL EXPOSURE DURING PREGNANCY [None]
